FAERS Safety Report 21721619 (Version 1)
Quarter: 2022Q4

REPORT INFORMATION
  Report Type: Spontaneous
  Country: US (occurrence: US)
  Receive Date: 20221213
  Receipt Date: 20221213
  Transmission Date: 20230112
  Serious: No
  Sender: FDA-Public Use
  Company Number: US-BAYER-2022P026968

PATIENT
  Age: 56 Year
  Sex: Female

DRUGS (2)
  1. ESTRADIOL [Suspect]
     Active Substance: ESTRADIOL
     Dosage: UNK
  2. LOSARTAN [Concomitant]
     Active Substance: LOSARTAN

REACTIONS (3)
  - Product adhesion issue [None]
  - Wrong technique in product usage process [None]
  - Device ineffective [None]
